FAERS Safety Report 6010652-0 (Version None)
Quarter: 2008Q4

REPORT INFORMATION
  Report Type: 
  Country: None (occurrence: None)
  Receive Date: 20081218
  Receipt Date: 20081118
  Transmission Date: 20090506
  Serious: No
  Sender: FDA-Public Use
  Company Number: US-BAYER-200834232NA

PATIENT
  Age: 49 Year
  Sex: Female

DRUGS (1)
  1. AVELOX [Suspect]
     Indication: SINUSITIS

REACTIONS (3)
  - BURNING SENSATION [None]
  - MUSCULAR WEAKNESS [None]
  - PARAESTHESIA [None]
